FAERS Safety Report 6232260-9 (Version None)
Quarter: 2009Q2

REPORT INFORMATION
  Report Type: 
  Country: None (occurrence: None)
  Receive Date: 20090617
  Receipt Date: 20090603
  Transmission Date: 20091009
  Serious: Yes (Hospitalization, Other)
  Sender: FDA-Public Use
  Company Number: DE-PFIZER INC-2009207837

PATIENT
  Age: 39 Year

DRUGS (3)
  1. HYDROXYZINE HCL [Suspect]
     Dosage: UNK
     Route: 048
     Dates: start: 20090428, end: 20090428
  2. DIAZEPAM [Suspect]
     Dosage: 5 DF, ONCE
     Route: 048
     Dates: start: 20090428, end: 20090428
  3. ALCOHOL [Suspect]
     Dosage: UNK
     Route: 048
     Dates: start: 20090428, end: 20090428

REACTIONS (5)
  - ALCOHOL POISONING [None]
  - SOMNOLENCE [None]
  - SUICIDAL BEHAVIOUR [None]
  - TACHYCARDIA [None]
  - VOMITING [None]
